FAERS Safety Report 5412146-X (Version None)
Quarter: 2007Q3

REPORT INFORMATION
  Report Type: 
  Country: None (occurrence: None)
  Receive Date: 20070713
  Receipt Date: 20070511
  Transmission Date: 20080115
  Serious: No
  Sender: FDA-Public Use
  Company Number: 2007SP001752

PATIENT
  Age: 55 Year
  Sex: Male
  Weight: 112.0385 kg

DRUGS (7)
  1. LUNESTA [Suspect]
     Indication: INSOMNIA
     Dosage: 3 MG 1X ORAL
     Route: 048
     Dates: start: 20070510, end: 20070510
  2. CRESTOR [Concomitant]
  3. PRILOSEC [Concomitant]
  4. TOPROL-XL [Concomitant]
  5. ATACAND [Concomitant]
  6. ASPIRIN [Concomitant]
  7. OMEGA 3 [Concomitant]

REACTIONS (3)
  - DRUG INEFFECTIVE [None]
  - DYSGEUSIA [None]
  - INITIAL INSOMNIA [None]
